FAERS Safety Report 4293365-5 (Version None)
Quarter: 2004Q1

REPORT INFORMATION
  Report Type: 
  Country: None (occurrence: None)
  Receive Date: 20040210
  Receipt Date: 20040129
  Transmission Date: 20041129
  Serious: Yes (Hospitalization)
  Sender: FDA-Public Use
  Company Number: US-JNJFOC-20040106101

PATIENT
  Age: 80 Year
  Sex: Female
  Weight: 68.0396 kg

DRUGS (9)
  1. REGRANEX [Suspect]
     Indication: DIABETIC ULCER
     Dates: start: 20021201
  2. GLUCOTROL [Concomitant]
  3. ACTOSE (PIOGLITAZONE) [Concomitant]
  4. LASIX [Concomitant]
  5. CHLORTHALID (CHLORTALIDONE) [Concomitant]
  6. CLONODINE (CLONIDINE) [Concomitant]
  7. TOPRAL XL (SULTOPRIDE) [Concomitant]
  8. LOTREL [Concomitant]
  9. LIPITOR [Concomitant]

REACTIONS (2)
  - BLISTER [None]
  - WOUND DEBRIDEMENT [None]
